FAERS Safety Report 5510076-6 (Version None)
Quarter: 2007Q4

REPORT INFORMATION
  Report Type: 
  Country: None (occurrence: None)
  Receive Date: 20071108
  Receipt Date: 20071022
  Transmission Date: 20080405
  Serious: No
  Sender: FDA-Public Use
  Company Number: US-ABBOTT-07P-163-0421595-00

PATIENT
  Sex: Female
  Weight: 136.36 kg

DRUGS (1)
  1. BIAXIN [Suspect]
     Indication: RESPIRATORY TRACT INFECTION
     Dates: start: 20050101, end: 20050101

REACTIONS (2)
  - DYSPNOEA [None]
  - HYPERSENSITIVITY [None]
